FAERS Safety Report 7941814-0 (Version None)
Quarter: 2011Q4

REPORT INFORMATION
  Report Type: 
  Country: None (occurrence: None)
  Receive Date: 20111122
  Receipt Date: 20111122
  Transmission Date: 20120403
  Serious: Yes (Hospitalization)
  Sender: FDA-Public Use
  Company Number: None

PATIENT
  Age: 59 Year
  Sex: Male
  Weight: 121.1 kg

DRUGS (2)
  1. LOSARTAN POTASSIUM [Suspect]
     Indication: HYPERTENSION
     Dosage: 50 MG EVERY DAY PO
     Route: 048
     Dates: start: 20071023, end: 20110428
  2. LOSARTAN POTASSIUM [Suspect]
     Indication: HYPERTENSION
     Dosage: 25 MG EVERY DAY SQ
     Route: 058
     Dates: start: 20110428, end: 20110815

REACTIONS (9)
  - HYPOTENSION [None]
  - ASTHENIA [None]
  - SLUGGISHNESS [None]
  - FATIGUE [None]
  - RENAL FAILURE ACUTE [None]
  - BACK PAIN [None]
  - DIZZINESS [None]
  - ABDOMINAL TENDERNESS [None]
  - FLANK PAIN [None]
